FAERS Safety Report 8074833-7 (Version None)
Quarter: 2012Q1

REPORT INFORMATION
  Report Type: 
  Country: None (occurrence: None)
  Receive Date: 20120126
  Receipt Date: 20120119
  Transmission Date: 20120608
  Serious: Yes (Hospitalization)
  Sender: FDA-Public Use
  Company Number: CH-ASTRAZENECA-2012SE04270

PATIENT
  Age: 51 Year
  Sex: Female

DRUGS (8)
  1. ENALAPRIL MALEATE [Suspect]
     Indication: ESSENTIAL HYPERTENSION
     Route: 048
     Dates: start: 20111219, end: 20111220
  2. ENALAPRIL [Concomitant]
     Dates: start: 20111219
  3. INSULINE ACTRAPID [Concomitant]
     Dosage: AS NECESSARY
     Route: 042
     Dates: start: 20111208, end: 20111222
  4. MEROPENEM [Suspect]
     Route: 042
     Dates: start: 20111202, end: 20111220
  5. VANCOCIN HYDROCHLORIDE [Suspect]
     Route: 042
     Dates: start: 20111215, end: 20111220
  6. SINTENYL [Concomitant]
     Dosage: AS NECESSARY
     Route: 042
  7. ENOXAPARIN SODIUM [Concomitant]
     Route: 058
     Dates: start: 20111216
  8. METOPROLOL TARTRATE [Concomitant]
     Route: 048
     Dates: start: 20111218

REACTIONS (3)
  - RASH [None]
  - SKIN EXFOLIATION [None]
  - EOSINOPHILIA [None]
